FAERS Safety Report 9448997 (Version 3)
Quarter: 2013Q3

REPORT INFORMATION
  Report Type: Report from Study
  Country: US (occurrence: US)
  Receive Date: 20130808
  Receipt Date: 20130906
  Transmission Date: 20140515
  Serious: Yes (Hospitalization, Other)
  Sender: FDA-Public Use
  Company Number: US-ALEXION PHARMACEUTICALS INC.-A201301815

PATIENT
  Age: 52 Year
  Sex: Female
  Weight: 65.31 kg

DRUGS (16)
  1. SOLIRIS [Suspect]
     Indication: PAROXYSMAL NOCTURNAL HAEMOGLOBINURIA
     Dosage: UNK, Q2W
     Route: 042
     Dates: start: 200903
  2. PEPCID [Concomitant]
     Dosage: 40 MG, QD
  3. ASA [Concomitant]
     Dosage: 81 MG, QD
  4. WELLBUTRIN [Concomitant]
     Dosage: 200 MG, QD
  5. FOLIC ACID [Concomitant]
     Dosage: 1 MG, QD
  6. SENNA [Concomitant]
     Dosage: 8.6 MG, QID
  7. ATIVAN [Concomitant]
     Dosage: 0.5 MG, QID PRN
  8. GAS-X [Concomitant]
     Dosage: UNK, PRN
  9. NEXIUM [Concomitant]
     Dosage: 20 MG, QD
  10. MV [Concomitant]
     Dosage: UNK, QD
  11. L-GLUTAMINE [Concomitant]
     Dosage: UNK
  12. VITAMIN E [Concomitant]
     Dosage: 400 IU, BID
  13. COQ10 [Concomitant]
     Dosage: 50 MG, BID
  14. PROBIOTICA [Concomitant]
  15. MELATONINUM [Concomitant]
     Dosage: 5 MG, QHS
  16. MELATONINUM [Concomitant]

REACTIONS (13)
  - Blood count abnormal [Unknown]
  - Pyrexia [Recovered/Resolved]
  - Pain [Unknown]
  - Blood potassium decreased [Unknown]
  - Bacterial infection [Unknown]
  - Cholecystitis chronic [Unknown]
  - Groin pain [Unknown]
  - Ecchymosis [Not Recovered/Not Resolved]
  - Abdominal pain [Recovered/Resolved]
  - Headache [Recovered/Resolved]
  - Chills [Recovered/Resolved]
  - Nausea [Not Recovered/Not Resolved]
  - Fatigue [Not Recovered/Not Resolved]
